FAERS Safety Report 26022949 (Version 1)
Quarter: 2025Q4

REPORT INFORMATION
  Report Type: Spontaneous
  Country: GB (occurrence: GB)
  Receive Date: 20251110
  Receipt Date: 20251110
  Transmission Date: 20260117
  Serious: Yes (Disabling)
  Sender: NOVO NORDISK
  Company Number: GB-MHRA-TPP374492C9485667YC1761759146125

PATIENT
  Age: 63 Year
  Sex: Male
  Weight: 125 kg

DRUGS (12)
  1. HYDROXOCOBALAMIN [Concomitant]
     Active Substance: HYDROXOCOBALAMIN
     Indication: Ill-defined disorder
     Dosage: 1MG (EVERY 3MONTHS)
     Route: 030
     Dates: start: 20251020
  2. MUSE [Concomitant]
     Active Substance: ALPROSTADIL
     Indication: Ill-defined disorder
     Dosage: URETHRAL STICK TO BE INSERTED INTO THE URETHRA
     Dates: start: 20241120
  3. ASPIRIN [Concomitant]
     Active Substance: ASPIRIN
     Indication: Ill-defined disorder
     Dosage: UNK(ONE TO BE TAKEN IN THE MORNING WITH FOOD)
     Dates: start: 20250210
  4. ATORVASTATIN [Concomitant]
     Active Substance: ATORVASTATIN
     Indication: Ill-defined disorder
     Dosage: UNK(ONE TO BE TAKEN IN THE MORNING)
     Dates: start: 20250210
  5. BISOPROLOL [Concomitant]
     Active Substance: BISOPROLOL
     Indication: Ill-defined disorder
     Dosage: UNK(ONE TO BE TAKEN IN THE MORNING)
     Dates: start: 20250210
  6. LEVOTHYROXINE [Concomitant]
     Active Substance: LEVOTHYROXINE
     Indication: Ill-defined disorder
     Dosage: UNK(ONE TO BE TAKEN IN THE MORNING, 30MINS BEF)
     Dates: start: 20250210
  7. LOSARTAN [Concomitant]
     Active Substance: LOSARTAN
     Indication: Ill-defined disorder
     Dosage: UNK(ONE TO BE TAKEN IN THE MORNING)
     Dates: start: 20250210
  8. METFORMIN [Concomitant]
     Active Substance: METFORMIN HYDROCHLORIDE
     Indication: Ill-defined disorder
     Dosage: UNK(TWO TO BE TAKEN TWICE A DAY WITH FOOD OR CA)
     Dates: start: 20250210
  9. SEMAGLUTIDE [Concomitant]
     Active Substance: SEMAGLUTIDE
     Indication: Ill-defined disorder
     Dosage: UNK(ONE TO BE TAKEN DAILY EMPTY STOMACH 30 MINU)
     Dates: start: 20250210, end: 20251003
  10. SITAGLIPTIN [Concomitant]
     Active Substance: SITAGLIPTIN
     Indication: Ill-defined disorder
     Dosage: UNK(ONE TO BE TAKEN IN THE MORNING WITH FOOD RE)
     Dates: start: 20250210
  11. TAMSULOSIN HYDROCHLORIDE [Concomitant]
     Active Substance: TAMSULOSIN HYDROCHLORIDE
     Indication: Ill-defined disorder
     Dosage: UNK(ONE TO BE TAKEN IN THE MORNING)
     Dates: start: 20250210
  12. RYBELSUS [Suspect]
     Active Substance: SEMAGLUTIDE
     Indication: Ill-defined disorder
     Dosage: 3 MG
     Route: 048
     Dates: start: 20250129, end: 20250212

REACTIONS (2)
  - Nocturia [Recovered/Resolved]
  - Pollakiuria [Recovered/Resolved]

NARRATIVE: CASE EVENT DATE: 20250129
